FAERS Safety Report 4804216-1 (Version None)
Quarter: 2005Q4

REPORT INFORMATION
  Report Type: 
  Country: None (occurrence: None)
  Receive Date: 20051017
  Receipt Date: 20051003
  Transmission Date: 20060501
  Serious: Yes (Death)
  Sender: FDA-Public Use
  Company Number: B0395839A

PATIENT
  Age: 18 Year
  Sex: Female

DRUGS (2)
  1. WELLBUTRIN SR [Suspect]
     Dosage: UNKNOWN
     Route: 065
  2. LYSERGIDE (FORMULATION UNKNOWN) (LYSERGIDE) [Suspect]
     Dosage: UNKNOWN/ORAL
     Route: 048

REACTIONS (12)
  - AGITATION [None]
  - AUTONOMIC NERVOUS SYSTEM IMBALANCE [None]
  - CONVULSION [None]
  - DRUG ABUSER [None]
  - HYPERTENSION [None]
  - HYPERTHERMIA [None]
  - HYPOTENSION [None]
  - RESPIRATORY DEPRESSION [None]
  - SPEECH DISORDER [None]
  - STATUS EPILEPTICUS [None]
  - TACHYCARDIA [None]
  - THERAPY NON-RESPONDER [None]
